FAERS Safety Report 8931687 (Version 2)
Quarter: 2012Q4

REPORT INFORMATION
  Report Type: 
  Country: SY (occurrence: SY)
  Receive Date: 20121128
  Receipt Date: 20121214
  Transmission Date: 20130627
  Serious: Yes (Other)
  Sender: FDA-Public Use
  Company Number: SY-GILEAD-2012-0065196

PATIENT
  Age: 56 Year
  Sex: Male

DRUGS (1)
  1. HEPSERA [Suspect]
     Indication: HEPATITIS B
     Dosage: UNK

REACTIONS (3)
  - Genotype drug resistance test positive [Not Recovered/Not Resolved]
  - Genotype drug resistance test positive [Not Recovered/Not Resolved]
  - Viral load increased [Not Recovered/Not Resolved]
